FAERS Safety Report 10315872 (Version 2)
Quarter: 2014Q3

REPORT INFORMATION
  Report Type: Other
  Country: US (occurrence: US)
  Receive Date: 20140719
  Receipt Date: 20140719
  Transmission Date: 20150326
  Serious: No
  Sender: FDA-Public Use
  Company Number: US-GSKPPD-2014GSK000293

PATIENT
  Sex: Male
  Weight: 178.88 kg

DRUGS (3)
  1. ALTACE [Concomitant]
     Active Substance: RAMIPRIL
  2. AVANDIA [Suspect]
     Active Substance: ROSIGLITAZONE MALEATE
     Indication: DIABETES MELLITUS
     Route: 048
     Dates: start: 20070707, end: 200711
  3. LASIX [Concomitant]
     Active Substance: FUROSEMIDE

REACTIONS (5)
  - Dyslipidaemia [None]
  - Hypertension [None]
  - Oedema [None]
  - Hyperlipidaemia [None]
  - Chest pain [None]

NARRATIVE: CASE EVENT DATE: 20080205
